FAERS Safety Report 11116051 (Version 1)
Quarter: 2015Q2

REPORT INFORMATION
  Report Type: Spontaneous
  Country: US (occurrence: US)
  Receive Date: 20150515
  Receipt Date: 20150515
  Transmission Date: 20150821
  Serious: Yes (Other)
  Sender: FDA-Public Use
  Company Number: US-PFIZER INC-2015162486

PATIENT
  Age: 78 Year
  Sex: Female
  Weight: 86 kg

DRUGS (2)
  1. EFFEXOR [Suspect]
     Active Substance: VENLAFAXINE HYDROCHLORIDE
     Indication: MEMORY IMPAIRMENT
     Dosage: 100 MG, 1X/DAY
  2. PREMARIN [Suspect]
     Active Substance: ESTROGENS, CONJUGATED
     Indication: HORMONE REPLACEMENT THERAPY
     Dosage: 1.25 MG, DAILY (ONE A DAY)

REACTIONS (3)
  - Malaise [Unknown]
  - Arthropathy [Unknown]
  - Limb discomfort [Unknown]
